FAERS Safety Report 6768877-2 (Version None)
Quarter: 2010Q2

REPORT INFORMATION
  Report Type: 
  Country: None (occurrence: None)
  Receive Date: 20100611
  Receipt Date: 20100527
  Transmission Date: 20101027
  Serious: Yes (Life-Threatening, Hospitalization)
  Sender: FDA-Public Use
  Company Number: 1-22792588

PATIENT
  Age: 73 Year
  Sex: Female
  Weight: 57.879 kg

DRUGS (11)
  1. AMIODARONE HCL [Suspect]
     Indication: POISONING DELIBERATE
     Dosage: ONCE, ORAL
     Route: 048
  2. BROMAZEPAM [Suspect]
     Indication: POISONING DELIBERATE
     Dosage: UP TO 180 MG, ONCE, ORAL
     Route: 048
  3. ZOLPIDEM [Suspect]
     Indication: POISONING DELIBERATE
     Dosage: UP TO 140 MG, ONCE, ORAL
     Route: 048
  4. ESOMEPRAZOLE MAGNESIUM [Suspect]
     Dosage: 20 MG, DAILY, ORAL
     Route: 048
  5. FLUINDIONE [Concomitant]
  6. DIPYRAMIDOLE [Concomitant]
  7. AMLODIPINE [Concomitant]
  8. RAMIPRIL [Concomitant]
  9. GLICLAZIDE [Concomitant]
  10. ATORVASTATIN [Concomitant]
  11. BETAHISTINE [Concomitant]

REACTIONS (13)
  - AREFLEXIA [None]
  - BRADYPNOEA [None]
  - COMA [None]
  - CONFUSIONAL STATE [None]
  - ELECTROCARDIOGRAM PR PROLONGATION [None]
  - ELECTROCARDIOGRAM QRS COMPLEX SHORTENED [None]
  - GASTROINTESTINAL DISORDER [None]
  - HYPOTONIA [None]
  - NERVOUS SYSTEM DISORDER [None]
  - PNEUMONIA ASPIRATION [None]
  - PROTEIN TOTAL DECREASED [None]
  - SINUS BRADYCARDIA [None]
  - THERAPEUTIC AGENT TOXICITY [None]
